FAERS Safety Report 9472179 (Version 1)
Quarter: 2013Q3

REPORT INFORMATION
  Report Type: Spontaneous
  Country: US (occurrence: None)
  Receive Date: 20130821
  Receipt Date: 20130821
  Transmission Date: 20140515
  Serious: No
  Sender: FDA-Public Use
  Company Number: None

PATIENT
  Age: 76 Year
  Sex: Male

DRUGS (1)
  1. TESTOSTERONE CYPIONATE [Suspect]
     Indication: TESTICULAR FAILURE
     Dosage: 200 MG EVERY 2 WEEKS INTRAMUSCULARLY
     Route: 030
     Dates: start: 20130208

REACTIONS (2)
  - Weight increased [None]
  - Blood testosterone increased [None]
